FAERS Safety Report 8732112 (Version 2)
Quarter: 2012Q4

REPORT INFORMATION
  Report Type: 
  Country: JP (occurrence: JP)
  Receive Date: 20120820
  Receipt Date: 20121203
  Transmission Date: 20130627
  Serious: Yes (Disabling)
  Sender: FDA-Public Use
  Company Number: JP-ASTRAZENECA-2012SE57802

PATIENT
  Age: 33 Year
  Sex: Male

DRUGS (1)
  1. SEROQUEL [Suspect]
     Indication: SCHIZOPHRENIA
     Route: 048
     Dates: start: 200610, end: 200707

REACTIONS (5)
  - Dyslalia [Unknown]
  - Mastication disorder [Unknown]
  - Tardive dyskinesia [Unknown]
  - Dystonia [Unknown]
  - Dysphagia [Unknown]
